FAERS Safety Report 5191161-8 (Version None)
Quarter: 2006Q4

REPORT INFORMATION
  Report Type: 
  Country: None (occurrence: None)
  Receive Date: 20061226
  Receipt Date: 20061218
  Transmission Date: 20070319
  Serious: Yes (Hospitalization)
  Sender: FDA-Public Use
  Company Number: FR-AVENTIS-200614487FR

PATIENT
  Age: 75 Year
  Sex: Female

DRUGS (7)
  1. LASILIX RETARD [Suspect]
     Indication: DRUG USE FOR UNKNOWN INDICATION
     Route: 048
  2. LASILIX RETARD [Suspect]
     Route: 048
     Dates: end: 20061110
  3. TERCIAN                            /00759301/ [Suspect]
     Indication: DRUG USE FOR UNKNOWN INDICATION
     Route: 048
     Dates: end: 20061110
  4. SPIRONOLACTONE [Suspect]
     Indication: DRUG USE FOR UNKNOWN INDICATION
     Route: 048
     Dates: end: 20061110
  5. STILNOX                            /00914901/ [Suspect]
     Indication: DRUG USE FOR UNKNOWN INDICATION
     Route: 048
     Dates: end: 20061110
  6. DETENSIEL                          /00802601/ [Suspect]
     Indication: DRUG USE FOR UNKNOWN INDICATION
     Route: 048
  7. LEXOMIL [Suspect]
     Indication: DRUG USE FOR UNKNOWN INDICATION
     Route: 048

REACTIONS (6)
  - ECCHYMOSIS [None]
  - EXTRAPYRAMIDAL DISORDER [None]
  - FALL [None]
  - INJURY [None]
  - RENAL FAILURE [None]
  - RHABDOMYOLYSIS [None]
